FAERS Safety Report 14041173 (Version 1)
Quarter: 2017Q4

REPORT INFORMATION
  Report Type: Report from Study
  Country: US (occurrence: US)
  Receive Date: 20171004
  Receipt Date: 20171004
  Transmission Date: 20180321
  Serious: No
  Sender: FDA-Public Use
  Company Number: US-AMGEN-USASL2016147733

PATIENT
  Age: 63 Year
  Sex: Female
  Weight: 63.5 kg

DRUGS (1)
  1. PROLIA [Suspect]
     Active Substance: DENOSUMAB
     Indication: OSTEOPOROSIS
     Dosage: UNK, Q6MO
     Route: 065

REACTIONS (6)
  - Influenza like illness [Unknown]
  - Skin disorder [Unknown]
  - Back pain [Recovered/Resolved]
  - Bone density abnormal [Recovering/Resolving]
  - Rash [Unknown]
  - Body height increased [Not Recovered/Not Resolved]
